FAERS Safety Report 10461079 (Version 1)
Quarter: 2014Q3

REPORT INFORMATION
  Report Type: Spontaneous
  Country: US (occurrence: None)
  Receive Date: 20140917
  Receipt Date: 20140917
  Transmission Date: 20150326
  Serious: No
  Sender: FDA-Public Use
  Company Number: None

PATIENT

DRUGS (1)
  1. VANCOMYCIN IV 1250 MG [Suspect]
     Active Substance: VANCOMYCIN

REACTIONS (4)
  - Drug administration error [None]
  - Drug level above therapeutic [None]
  - Renal failure acute [None]
  - Nephropathy toxic [None]
